FAERS Safety Report 24203340 (Version 2)
Quarter: 2024Q3

REPORT INFORMATION
  Report Type: Spontaneous
  Country: US (occurrence: US)
  Receive Date: 20240813
  Receipt Date: 20240926
  Transmission Date: 20241017
  Serious: No
  Sender: NOVARTIS
  Company Number: US-002147023-NVSC2024US163580

PATIENT
  Sex: Male

DRUGS (1)
  1. COSENTYX [Suspect]
     Active Substance: SECUKINUMAB
     Indication: Axial spondyloarthritis
     Dosage: UNK UNK, QMO
     Route: 058

REACTIONS (1)
  - Diarrhoea [Not Recovered/Not Resolved]
